FAERS Safety Report 6408874-X (Version None)
Quarter: 2009Q4

REPORT INFORMATION
  Report Type: 
  Country: None (occurrence: None)
  Receive Date: 20091019
  Receipt Date: 20091005
  Transmission Date: 20100525
  Serious: Yes (Hospitalization)
  Sender: FDA-Public Use
  Company Number: 8053138

PATIENT
  Age: 5 Year
  Sex: Male

DRUGS (1)
  1. XOZAL [Suspect]
     Dosage: 25 ML ONCE PO
     Route: 048

REACTIONS (1)
  - OVERDOSE [None]
